FAERS Safety Report 18865076 (Version 1)
Quarter: 2021Q1

REPORT INFORMATION
  Report Type: Spontaneous
  Country: JP (occurrence: JP)
  Receive Date: 20210208
  Receipt Date: 20210208
  Transmission Date: 20210420
  Serious: Yes (Other)
  Sender: FDA-Public Use
  Company Number: JP-FERRINGPH-2021FE00605

PATIENT
  Age: 9 Decade
  Sex: Female

DRUGS (7)
  1. TAKEPRON [Concomitant]
     Active Substance: LANSOPRAZOLE
     Route: 065
  2. BENET [Concomitant]
     Active Substance: RISEDRONATE SODIUM
     Route: 065
  3. MINIRINMELT [Suspect]
     Active Substance: DESMOPRESSIN ACETATE
     Indication: PRODUCT USED FOR UNKNOWN INDICATION
     Dosage: 240 UG 1 TIME DAILY
     Route: 065
  4. BETANIS [Concomitant]
     Active Substance: MIRABEGRON
     Route: 065
  5. VIVIANT [Concomitant]
     Active Substance: BAZEDOXIFENE
     Route: 065
  6. CANALIA COMBINATION [Concomitant]
     Active Substance: CANAGLIFLOZIN\TENELIGLIPTIN
     Route: 065
  7. ZEPOLAS [Concomitant]
     Dosage: UNK
     Route: 065
     Dates: start: 201802

REACTIONS (1)
  - Polymyalgia rheumatica [Unknown]
